FAERS Safety Report 9271264 (Version 2)
Quarter: 2015Q2

REPORT INFORMATION
  Report Type: Spontaneous
  Country: US (occurrence: US)
  Receive Date: 20130506
  Receipt Date: 20150526
  Transmission Date: 20150821
  Serious: Yes (Congenital Anomaly, Other)
  Sender: FDA-Public Use
  Company Number: US-ELI_LILLY_AND_COMPANY-US201304008030

PATIENT
  Sex: Female

DRUGS (10)
  1. PITOCIN [Concomitant]
     Active Substance: OXYTOCIN
     Route: 064
  2. PROZAC [Suspect]
     Active Substance: FLUOXETINE HYDROCHLORIDE
     Dosage: 20 MG, UNKNOWN
     Route: 064
  3. NATALCARE [Concomitant]
     Dosage: 1 DF, UNKNOWN
     Route: 064
  4. TRIPLE SULFA                       /00076701/ [Concomitant]
     Dosage: 1 DF, UNKNOWN
     Route: 064
  5. PERI-COLACE [Concomitant]
     Active Substance: CASANTHRANOL\DOCUSATE SODIUM
     Route: 064
  6. FERROUS SULFATE [Concomitant]
     Active Substance: FERROUS SULFATE\FERROUS SULFATE, DRIED
     Route: 064
  7. ZITHROMAX [Concomitant]
     Active Substance: AZITHROMYCIN DIHYDRATE
     Route: 064
  8. PROZAC [Suspect]
     Active Substance: FLUOXETINE HYDROCHLORIDE
     Indication: PRODUCT USED FOR UNKNOWN INDICATION
     Dosage: 10 MG, UNKNOWN
     Route: 064
  9. PENICILLIN                         /00000901/ [Concomitant]
     Active Substance: PENICILLIN
     Route: 064
  10. IMODIUM A-D [Concomitant]
     Active Substance: LOPERAMIDE HYDROCHLORIDE
     Route: 064

REACTIONS (5)
  - Pulmonary artery stenosis congenital [Recovered/Resolved]
  - Meconium in amniotic fluid [Recovered/Resolved]
  - Cardiac murmur [Recovered/Resolved]
  - Congenital mitral valve incompetence [Not Recovered/Not Resolved]
  - Foetal exposure during pregnancy [Unknown]
